FAERS Safety Report 24679885 (Version 1)
Quarter: 2024Q4

REPORT INFORMATION
  Report Type: Spontaneous
  Country: US (occurrence: US)
  Receive Date: 20241129
  Receipt Date: 20241129
  Transmission Date: 20250114
  Serious: Yes (Other)
  Sender: SANOFI AVENTIS
  Company Number: US-SA-2024SA348835

PATIENT
  Age: 60 Year

DRUGS (1)
  1. AUBAGIO [Suspect]
     Active Substance: TERIFLUNOMIDE
     Dosage: 14 MG QD
     Route: 048

REACTIONS (5)
  - Cardiac disorder [Unknown]
  - Loss of consciousness [Unknown]
  - Drug level increased [Recovered/Resolved]
  - Dizziness [Unknown]
  - Oversensing [Unknown]
